FAERS Safety Report 12292894 (Version 1)
Quarter: 2016Q2

REPORT INFORMATION
  Report Type: Report from Study
  Country: US (occurrence: US)
  Receive Date: 20160421
  Receipt Date: 20160421
  Transmission Date: 20160815
  Serious: Yes (Other)
  Sender: FDA-Public Use
  Company Number: US-AMGEN-USASL2016031799

PATIENT
  Age: 65 Year
  Sex: Female
  Weight: 70.3 kg

DRUGS (5)
  1. REPATHA [Suspect]
     Active Substance: EVOLOCUMAB
     Indication: HYPERCHOLESTEROLAEMIA
     Dosage: UNK
     Route: 065
     Dates: start: 20160219, end: 20160303
  2. LYRICA [Concomitant]
     Active Substance: PREGABALIN
     Dosage: 75 MG, AS NECESSARY
     Route: 048
  3. VALIUM [Concomitant]
     Active Substance: DIAZEPAM
     Dosage: 5 MG, QID
     Route: 048
  4. TRAMADOL. [Concomitant]
     Active Substance: TRAMADOL
     Dosage: 60 MG, AS NECESSARY
     Route: 048
  5. REPATHA [Suspect]
     Active Substance: EVOLOCUMAB
     Indication: HYPERLIPIDAEMIA

REACTIONS (31)
  - Palpitations [Unknown]
  - Aphonia [Unknown]
  - Hyperhidrosis [Unknown]
  - Pain in extremity [Recovered/Resolved]
  - Fatigue [Unknown]
  - Night sweats [Unknown]
  - Myalgia [Unknown]
  - Urticaria [Unknown]
  - Insomnia [Unknown]
  - Mobility decreased [Not Recovered/Not Resolved]
  - Feeling abnormal [Unknown]
  - Dizziness [Unknown]
  - Nausea [Unknown]
  - Cough [Unknown]
  - Respiratory tract congestion [Unknown]
  - Hypersensitivity [Unknown]
  - Arthralgia [Unknown]
  - Cold sweat [Unknown]
  - Discomfort [Unknown]
  - Rash [Unknown]
  - Rash erythematous [Unknown]
  - Alopecia [Recovered/Resolved]
  - Chills [Unknown]
  - Diarrhoea [Recovered/Resolved]
  - Gastroenteritis [Unknown]
  - Injection site mass [Unknown]
  - Eructation [Unknown]
  - Injection site erythema [Unknown]
  - Pain [Unknown]
  - Rhinorrhoea [Unknown]
  - Muscle spasms [Unknown]

NARRATIVE: CASE EVENT DATE: 201602
